FAERS Safety Report 23958664 (Version 1)
Quarter: 2024Q2

REPORT INFORMATION
  Report Type: Report from Study
  Country: DE (occurrence: DE)
  Receive Date: 20240610
  Receipt Date: 20240610
  Transmission Date: 20240716
  Serious: Yes (Hospitalization)
  Sender: FDA-Public Use
  Company Number: DE-ABBVIE-5789665

PATIENT
  Sex: Female

DRUGS (2)
  1. CARBIDOPA\LEVODOPA [Suspect]
     Active Substance: CARBIDOPA\LEVODOPA
     Indication: Parkinson^s disease
     Route: 050
     Dates: start: 20220906
  2. CARBIDOPA\LEVODOPA [Suspect]
     Active Substance: CARBIDOPA\LEVODOPA
     Dosage: MD 2.0 ML; CRD 3.6 ML/H; ED 0.5 ML
     Route: 050

REACTIONS (3)
  - Hyperkinesia [Not Recovered/Not Resolved]
  - Restlessness [Not Recovered/Not Resolved]
  - Dyskinesia [Not Recovered/Not Resolved]
